FAERS Safety Report 9316318 (Version 1)
Quarter: 2013Q2

REPORT INFORMATION
  Report Type: Spontaneous
  Country: NL (occurrence: NL)
  Receive Date: 20130530
  Receipt Date: 20130530
  Transmission Date: 20140414
  Serious: Yes (Hospitalization)
  Sender: FDA-Public Use
  Company Number: NL-AMGEN-NLDSP2013037934

PATIENT
  Age: 48 Year
  Sex: Female
  Weight: 71 kg

DRUGS (6)
  1. ENBREL [Suspect]
     Indication: JUVENILE IDIOPATHIC ARTHRITIS
     Dosage: 50 MG, 1 X WEEK
     Dates: start: 200902
  2. ENBREL [Suspect]
     Indication: RHEUMATOID ARTHRITIS
     Dosage: UNK
     Route: 065
  3. PARACETAMOL WITH CODEINE PHOSPHATE [Concomitant]
     Dosage: UNK
     Route: 065
     Dates: start: 200911
  4. DICLOFENAC [Concomitant]
     Dosage: UNK
     Route: 065
  5. OMEPRAZOLE [Concomitant]
     Dosage: UNK
     Route: 065
  6. PROPRANOLOL [Concomitant]
     Dosage: UNK
     Route: 065

REACTIONS (5)
  - Basedow^s disease [Recovering/Resolving]
  - Neutrophil percentage decreased [Not Recovered/Not Resolved]
  - Malaise [Not Recovered/Not Resolved]
  - Nervousness [Unknown]
  - Sleep disorder [Unknown]
